FAERS Safety Report 6150387-7 (Version None)
Quarter: 2009Q2

REPORT INFORMATION
  Report Type: 
  Country: None (occurrence: None)
  Receive Date: 20090409
  Receipt Date: 20090401
  Transmission Date: 20091009
  Serious: Yes (Other)
  Sender: FDA-Public Use
  Company Number: CA-ASTRAZENECA-2009AC00992

PATIENT
  Age: 50 Year
  Sex: Female

DRUGS (2)
  1. ROPIVACAINE [Suspect]
     Indication: LOCAL ANAESTHESIA
     Route: 053
  2. ADRENALIN [Suspect]
     Dosage: 2.5 UG/ML
     Route: 053

REACTIONS (1)
  - NERVE ROOT INJURY [None]
